FAERS Safety Report 6655030-6 (Version None)
Quarter: 2010Q1

REPORT INFORMATION
  Report Type: 
  Country: None (occurrence: None)
  Receive Date: 20100329
  Receipt Date: 20100318
  Transmission Date: 20100710
  Serious: Yes (Hospitalization)
  Sender: FDA-Public Use
  Company Number: US-EISAI INC.-E7273-00138-CLI-US

PATIENT
  Sex: Male

DRUGS (4)
  1. TARGRETIN [Suspect]
     Indication: MYELODYSPLASTIC SYNDROME
     Route: 048
     Dates: start: 20100128, end: 20100224
  2. TARGRETIN [Suspect]
     Indication: FIBROSIS
  3. SARGRAMOSTIM [Suspect]
     Indication: MYELODYSPLASTIC SYNDROME
     Route: 048
     Dates: start: 20100128, end: 20100224
  4. SARGRAMOSTIM [Suspect]
     Indication: FIBROSIS
     Route: 048
     Dates: start: 20100304, end: 20100224

REACTIONS (5)
  - DYSPNOEA [None]
  - FLANK PAIN [None]
  - HAEMATURIA [None]
  - LIVER FUNCTION TEST ABNORMAL [None]
  - NEPHROLITHIASIS [None]
